FAERS Safety Report 11161912 (Version 2)
Quarter: 2015Q3

REPORT INFORMATION
  Report Type: Spontaneous
  Country: US (occurrence: None)
  Receive Date: 20150602
  Receipt Date: 20150723
  Transmission Date: 20151125
  Serious: Yes (Other)
  Sender: FDA-Public Use
  Company Number: 2015-US-0136

PATIENT
  Age: 71 Year
  Sex: Female
  Weight: 59.88 kg

DRUGS (5)
  1. AZITHROMYCIN [Concomitant]
     Active Substance: AZITHROMYCIN ANHYDROUS
  2. ETHAMBUTOL [Concomitant]
     Active Substance: ETHAMBUTOL HYDROCHLORIDE
  3. RIFAMPIN (RIFAMPIN) [Concomitant]
  4. AVASTIN [Concomitant]
     Active Substance: BEVACIZUMAB
  5. SANCUSO [Suspect]
     Active Substance: GRANISETRON
     Indication: NAUSEA
     Route: 061
     Dates: start: 20150526, end: 20150526

REACTIONS (2)
  - Off label use [None]
  - Lip swelling [None]

NARRATIVE: CASE EVENT DATE: 20150526
